FAERS Safety Report 7406798-2 (Version None)
Quarter: 2011Q2

REPORT INFORMATION
  Report Type: 
  Country: None (occurrence: None)
  Receive Date: 20110411
  Receipt Date: 20110408
  Transmission Date: 20111010
  Serious: Yes (Death, Hospitalization)
  Sender: FDA-Public Use
  Company Number: PHHY2011GB29123

PATIENT
  Age: 63 Year
  Sex: Female

DRUGS (5)
  1. OXALIPLATIN [Suspect]
     Indication: GASTROINTESTINAL CARCINOMA
     Dosage: 238 MG, QD
     Route: 042
     Dates: start: 20101126, end: 20101126
  2. DEXAMETHASONE [Concomitant]
     Indication: HEPATIC PAIN
     Dosage: 2 MG, QD
  3. OMEPRAZOLE [Concomitant]
     Indication: ANTACID THERAPY
     Dosage: 30 MG, QD
     Route: 048
  4. PARACETAMOL [Concomitant]
     Indication: ANALGESIC THERAPY
     Dosage: 4 G, DAILY
  5. XELODA [Suspect]
     Indication: GASTROINTESTINAL CARCINOMA
     Dosage: 1830 MG, BID
     Route: 048
     Dates: start: 20101126, end: 20101209

REACTIONS (6)
  - COLITIS [None]
  - NEUTROPENIC SEPSIS [None]
  - RENAL FAILURE ACUTE [None]
  - DEHYDRATION [None]
  - NEUTROPENIA [None]
  - THROMBOCYTOPENIA [None]
